FAERS Safety Report 6471994-8 (Version None)
Quarter: 2009Q4

REPORT INFORMATION
  Report Type: 
  Country: None (occurrence: None)
  Receive Date: 20091203
  Receipt Date: 20080411
  Transmission Date: 20100525
  Serious: Yes (Hospitalization)
  Sender: FDA-Public Use
  Company Number: US-ELI_LILLY_AND_COMPANY-US200804003200

PATIENT
  Sex: Female
  Weight: 88.435 kg

DRUGS (5)
  1. BYETTA [Suspect]
     Indication: WEIGHT DECREASED
     Dosage: 5 UG, 2/D
     Route: 058
     Dates: start: 20060301, end: 20070301
  2. BYETTA [Suspect]
     Dosage: 5 UG, 2/D
     Route: 058
     Dates: start: 20080301
  3. LANTUS [Concomitant]
     Indication: TYPE 2 DIABETES MELLITUS
     Dosage: 65 U, EACH MORNING
     Dates: start: 20070301, end: 20080301
  4. LANTUS [Concomitant]
     Dosage: 40 U, EACH MORNING
     Dates: start: 20080301
  5. PREDNISONE [Concomitant]
     Indication: BURSITIS

REACTIONS (5)
  - BLOOD GLUCOSE INCREASED [None]
  - HUNGER [None]
  - HYPOGLYCAEMIA [None]
  - JOINT DESTRUCTION [None]
  - WEIGHT DECREASED [None]
